FAERS Safety Report 20825664 (Version 1)
Quarter: 2022Q2

REPORT INFORMATION
  Report Type: Spontaneous
  Country: FR (occurrence: FR)
  Receive Date: 20220513
  Receipt Date: 20220513
  Transmission Date: 20220720
  Serious: Yes (Life-Threatening, Hospitalization)
  Sender: FDA-Public Use
  Company Number: None

PATIENT
  Age: 68 Year
  Sex: Female

DRUGS (2)
  1. FLUCONAZOLE [Suspect]
     Active Substance: FLUCONAZOLE
     Indication: Candida endophthalmitis
     Dosage: 400 MG , DURATION : 9 DAYS , FREQUENCY TIME : 1 DAY
     Route: 048
     Dates: start: 20220401, end: 20220410
  2. LINEZOLID [Suspect]
     Active Substance: LINEZOLID
     Indication: Tuberculosis
     Dosage: 600 MG , DURATION : 11 DAYS , FREQUENCY TIME : 12 HOURS
     Route: 048
     Dates: start: 20220330, end: 20220410

REACTIONS (2)
  - Pancreatitis acute [Recovering/Resolving]
  - Hepatitis [Recovering/Resolving]

NARRATIVE: CASE EVENT DATE: 20220405
